FAERS Safety Report 6207312-X (Version None)
Quarter: 2009Q2

REPORT INFORMATION
  Report Type: 
  Country: None (occurrence: None)
  Receive Date: 20090528
  Receipt Date: 20090521
  Transmission Date: 20091009
  Serious: Yes (Other)
  Sender: FDA-Public Use
  Company Number: TR-ABBOTT-09P-161-0575317-00

PATIENT
  Age: 22 Year
  Sex: Male

DRUGS (2)
  1. WARFARIN [Suspect]
     Indication: EXTRADURAL HAEMATOMA
     Dosage: NOT REPORTED
  2. BOTULINUM TOXIN TYPE A [Suspect]
     Indication: HYPERTONIC BLADDER

REACTIONS (1)
  - HAEMATURIA [None]
